FAERS Safety Report 6616626-0 (Version None)
Quarter: 2010Q1

REPORT INFORMATION
  Report Type: 
  Country: None (occurrence: None)
  Receive Date: 20100223
  Receipt Date: 20091026
  Transmission Date: 20100710
  Serious: No
  Sender: FDA-Public Use
  Company Number: 8052006

PATIENT
  Sex: Female

DRUGS (7)
  1. CERTOLIZUMAB PEGOL (UCB, INC) [Suspect]
     Indication: CROHN'S DISEASE
     Dosage: SUBCUTANEOUS
     Route: 058
     Dates: start: 20081020
  2. MERCAPTOPURINE [Suspect]
  3. ENTOCORT EC [Concomitant]
  4. FISH OIL [Concomitant]
  5. MULTI-VITAMINS [Concomitant]
  6. CALTRATE + D [Concomitant]
  7. CIPRO [Concomitant]

REACTIONS (4)
  - CHILLS [None]
  - INFLUENZA LIKE ILLNESS [None]
  - OEDEMA PERIPHERAL [None]
  - PYREXIA [None]
